FAERS Safety Report 22594469 (Version 1)
Quarter: 2023Q2

REPORT INFORMATION
  Report Type: Spontaneous
  Country: US (occurrence: None)
  Receive Date: 20230612
  Receipt Date: 20230612
  Transmission Date: 20230722
  Serious: No
  Sender: FDA-Public Use
  Company Number: None

PATIENT
  Age: 62 Year
  Sex: Female

DRUGS (1)
  1. MORPHINE [Suspect]
     Active Substance: MORPHINE
     Indication: Tumour pain
     Dosage: OTHER QUANTITY : 3 TABLET(S);?FREQUENCY : EVERY 6 HOURS;?

REACTIONS (1)
  - Nausea [None]

NARRATIVE: CASE EVENT DATE: 20230612
